FAERS Safety Report 5002915-2 (Version None)
Quarter: 2006Q2

REPORT INFORMATION
  Report Type: 
  Country: None (occurrence: None)
  Receive Date: 20060512
  Receipt Date: 20060502
  Transmission Date: 20061013
  Serious: No
  Sender: FDA-Public Use
  Company Number: 06H-163-0308095-00

PATIENT

DRUGS (2)
  1. DEXMEDETOMIDINE INJECTION (DEXMEDETOMIDINE HYDROCHLORIDE INJECTION) [Suspect]
     Indication: ANALGESIC THERAPY
     Dosage: SEE IMAGE, INTRAVENOUS
     Route: 042
  2. DEXMEDETOMIDINE INJECTION (DEXMEDETOMIDINE HYDROCHLORIDE INJECTION) [Suspect]
     Indication: SEDATIVE THERAPY
     Dosage: SEE IMAGE, INTRAVENOUS
     Route: 042

REACTIONS (1)
  - HYPOCALCAEMIA [None]
